FAERS Safety Report 25547868 (Version 1)
Quarter: 2025Q3

REPORT INFORMATION
  Report Type: Spontaneous
  Country: US (occurrence: US)
  Receive Date: 20250714
  Receipt Date: 20250714
  Transmission Date: 20251020
  Serious: No
  Sender: ROCHE
  Company Number: US-ROCHE-10000332037

PATIENT
  Age: 7 Week

DRUGS (1)
  1. SOMATROPIN [Suspect]
     Active Substance: SOMATROPIN
     Indication: Prader-Willi syndrome
     Route: 065

REACTIONS (2)
  - Tonsillar hypertrophy [Unknown]
  - Lymphoid tissue hyperplasia [Unknown]
